FAERS Safety Report 4311292-1 (Version None)
Quarter: 2004Q1

REPORT INFORMATION
  Report Type: 
  Country: None (occurrence: None)
  Receive Date: 20040304
  Receipt Date: 20040129
  Transmission Date: 20041129
  Serious: Yes (Hospitalization)
  Sender: FDA-Public Use
  Company Number: JP-GLAXOSMITHKLINE-B0321681A

PATIENT
  Age: 80 Year
  Sex: Female
  Weight: 48 kg

DRUGS (3)
  1. PAROXETINE HCL [Suspect]
     Indication: DEPRESSION
     Route: 048
     Dates: start: 20031211, end: 20031224
  2. PROPIVERINE HYDROCHLORIDE [Concomitant]
     Indication: NEUROGENIC BLADDER
     Dosage: 20MG PER DAY
     Route: 048
     Dates: start: 19930101
  3. AMLODIPINE BESYLATE [Concomitant]
     Indication: HYPERTENSION
     Dosage: 2.5MG PER DAY
     Route: 048
     Dates: start: 19930101

REACTIONS (8)
  - ASTHENIA [None]
  - DEPRESSED LEVEL OF CONSCIOUSNESS [None]
  - DYSSTASIA [None]
  - EPILEPSY [None]
  - FEELING ABNORMAL [None]
  - INFECTION [None]
  - MALAISE [None]
  - MASKED FACIES [None]
